FAERS Safety Report 9888254 (Version 2)
Quarter: 2014Q1

REPORT INFORMATION
  Report Type: Spontaneous
  Country: IT (occurrence: IT)
  Receive Date: 20140211
  Receipt Date: 20140213
  Transmission Date: 20141002
  Serious: Yes (Other)
  Sender: FDA-Public Use
  Company Number: IT-TEVA-460877ISR

PATIENT
  Age: 77 Year
  Sex: Female

DRUGS (4)
  1. IRBESARTAN [Suspect]
     Indication: CARDIAC FIBRILLATION
     Dosage: 150 MG DAILY
     Route: 048
     Dates: start: 20131210, end: 20131223
  2. PROPAFENONE [Suspect]
     Indication: PALPITATIONS
     Dosage: 300 MG AS NECESSARY
     Route: 048
     Dates: start: 20131210, end: 20131223
  3. ACETYLSALICYLIC ACID [Suspect]
     Indication: CARDIAC FIBRILLATION
     Dosage: 100 MILLIGRAM DAILY;
     Route: 048
     Dates: start: 20131210, end: 20131223
  4. LOBIVON - 5 MG COMPRESSE [Concomitant]
     Indication: HYPERTENSION
     Dosage: 2.5 MG
     Route: 048

REACTIONS (3)
  - Atrial fibrillation [Recovered/Resolved]
  - Blood pressure increased [Recovered/Resolved]
  - Drug ineffective [Recovered/Resolved]
